FAERS Safety Report 11908593 (Version 1)
Quarter: 2016Q1

REPORT INFORMATION
  Report Type: Spontaneous
  Country: US (occurrence: US)
  Receive Date: 20160111
  Receipt Date: 20160111
  Transmission Date: 20160526
  Serious: Yes (Hospitalization)
  Sender: FDA-Public Use
  Company Number: US-PFIZER INC-2016007521

PATIENT
  Sex: Female

DRUGS (3)
  1. INDOMETACIN [Concomitant]
     Active Substance: INDOMETHACIN
     Dosage: UNK
  2. HYDROCORTISONE ACETATE. [Suspect]
     Active Substance: HYDROCORTISONE ACETATE
     Indication: ADRENAL INSUFFICIENCY
     Dosage: 1 MG/KG, EVERY 6 H
  3. CALCIUM [Concomitant]
     Active Substance: CALCIUM
     Dosage: UNK
     Route: 042

REACTIONS (1)
  - Pneumatosis [Recovered/Resolved]
